FAERS Safety Report 7710203-6 (Version None)
Quarter: 2011Q3

REPORT INFORMATION
  Report Type: 
  Country: None (occurrence: None)
  Receive Date: 20110825
  Receipt Date: 20110816
  Transmission Date: 20111222
  Serious: Yes (Hospitalization, Other)
  Sender: FDA-Public Use
  Company Number: FR-VERTEX PHARMACEUTICALS INC.-AE-2011-000173

PATIENT
  Sex: Male
  Weight: 72 kg

DRUGS (6)
  1. LEVOCARNIL [Concomitant]
     Indication: MYALGIA
     Route: 048
     Dates: start: 20110131
  2. RIBAVIRIN [Concomitant]
     Indication: HEPATITIS C
  3. TOCO [Concomitant]
     Indication: INSULIN RESISTANCE
     Route: 048
     Dates: start: 20101129
  4. PEGINTERFERON ALFA-2A [Concomitant]
     Indication: HEPATITIS C
     Dates: start: 20110221
  5. PROMACTA [Concomitant]
     Indication: THROMBOCYTOPENIA
     Dates: start: 20110416
  6. VX-950 [Suspect]
     Indication: HEPATITIS C
     Route: 048
     Dates: start: 20110221, end: 20110515

REACTIONS (7)
  - PANCREATITIS ACUTE [None]
  - NEUTROPENIA [None]
  - ASTHENIA [None]
  - ANAEMIA [None]
  - THROMBOCYTOPENIA [None]
  - WEIGHT DECREASED [None]
  - EPISTAXIS [None]
